FAERS Safety Report 8016264-1 (Version None)
Quarter: 2011Q4

REPORT INFORMATION
  Report Type: 
  Country: None (occurrence: None)
  Receive Date: 20111230
  Receipt Date: 20111227
  Transmission Date: 20120403
  Serious: Yes (Disabling, Other)
  Sender: FDA-Public Use
  Company Number: US-MERCK-1107USA02570

PATIENT
  Age: 75 Year
  Sex: Female
  Weight: 61 kg

DRUGS (9)
  1. FORTEO [Suspect]
     Indication: OSTEOPOROSIS
     Route: 065
  2. FOSAMAX [Suspect]
     Indication: OSTEOPENIA
     Route: 048
     Dates: start: 19980101, end: 20060601
  3. FOSAMAX [Suspect]
     Route: 048
     Dates: start: 19950101, end: 20050101
  4. ACTONEL [Suspect]
     Indication: OSTEOPOROSIS
     Route: 048
     Dates: start: 20070301, end: 20081201
  5. BONIVA [Suspect]
     Indication: OSTEOPENIA
     Route: 048
     Dates: start: 20060601, end: 20070301
  6. FOSAMAX [Suspect]
     Indication: OSTEOPOROSIS
     Route: 048
     Dates: start: 19980101, end: 20060601
  7. ACTONEL [Suspect]
     Indication: OSTEOPENIA
     Route: 048
     Dates: start: 20070301, end: 20081201
  8. FOSAMAX [Suspect]
     Route: 048
     Dates: start: 19950101, end: 20050101
  9. BONIVA [Suspect]
     Indication: OSTEOPOROSIS
     Route: 048
     Dates: start: 20060601, end: 20070301

REACTIONS (21)
  - MYOFASCIAL PAIN SYNDROME [None]
  - ORAL TORUS [None]
  - BLOOD CHOLESTEROL INCREASED [None]
  - CORONARY ARTERY DISEASE [None]
  - JAW DISORDER [None]
  - TOOTH DISORDER [None]
  - SENSITIVITY OF TEETH [None]
  - OSTEOARTHRITIS [None]
  - ORAL INFECTION [None]
  - OSTEONECROSIS [None]
  - DEEP VEIN THROMBOSIS [None]
  - BACK PAIN [None]
  - PULMONARY EMBOLISM [None]
  - GLOSSITIS [None]
  - STOMATITIS [None]
  - GLOSSODYNIA [None]
  - ANGINA PECTORIS [None]
  - ARTHRALGIA [None]
  - DRUG INEFFECTIVE [None]
  - ANGIOPATHY [None]
  - OSTEONECROSIS OF JAW [None]
